FAERS Safety Report 5895982-5 (Version None)
Quarter: 2008Q3

REPORT INFORMATION
  Report Type: 
  Country: None (occurrence: None)
  Receive Date: 20080828
  Receipt Date: 20071024
  Transmission Date: 20090109
  Serious: Yes (Other)
  Sender: FDA-Public Use
  Company Number: 163482USA

PATIENT
  Sex: Male

DRUGS (4)
  1. METOCLOPRAMIDE [Suspect]
     Indication: DIABETIC GASTROPARESIS
     Dosage: ORAL
     Route: 048
     Dates: start: 20000501, end: 20010101
  2. METOCLOPRAMIDE [Suspect]
     Indication: GASTROINTESTINAL DISORDER
     Dosage: ORAL
     Route: 048
     Dates: start: 20000501, end: 20010101
  3. METOCLOPRAMIDE [Suspect]
     Indication: GASTROOESOPHAGEAL REFLUX DISEASE
     Dosage: ORAL
     Route: 048
     Dates: start: 20000501, end: 20010101
  4. METOCLOPRAMIDE [Suspect]
     Indication: IRRITABLE BOWEL SYNDROME
     Dosage: ORAL
     Route: 048
     Dates: start: 20000501, end: 20010101

REACTIONS (1)
  - TARDIVE DYSKINESIA [None]
